APPROVED DRUG PRODUCT: MEXILETINE HYDROCHLORIDE
Active Ingredient: MEXILETINE HYDROCHLORIDE
Strength: 150MG
Dosage Form/Route: CAPSULE;ORAL
Application: A215876 | Product #001 | TE Code: AB
Applicant: QUAGEN PHARMACEUTICALS LLC
Approved: Feb 27, 2023 | RLD: No | RS: No | Type: RX